FAERS Safety Report 8545682-8 (Version None)
Quarter: 2012Q3

REPORT INFORMATION
  Report Type: 
  Country: None (occurrence: None)
  Receive Date: 20120727
  Receipt Date: 20120126
  Transmission Date: 20120928
  Serious: Yes (Other)
  Sender: FDA-Public Use
  Company Number: CHPA2012US014975

PATIENT
  Sex: Female

DRUGS (3)
  1. EXCEDRIN (MIGRAINE) [Suspect]
     Dosage: UP TO 6 CAPLETS A DAY
     Route: 048
  2. EXCEDRIN (MIGRAINE) [Suspect]
     Indication: HEADACHE
     Dosage: UP TO 6 CAPLETS A DAY
     Route: 048
  3. EXCEDRIN (MIGRAINE) [Suspect]
     Dosage: UP TO 6 CAPLETS A DAY
     Route: 048

REACTIONS (2)
  - DRUG DEPENDENCE [None]
  - OVERDOSE [None]
